FAERS Safety Report 5778415-9 (Version None)
Quarter: 2008Q2

REPORT INFORMATION
  Report Type: 
  Country: None (occurrence: None)
  Receive Date: 20080619
  Receipt Date: 20070823
  Transmission Date: 20081010
  Serious: No
  Sender: FDA-Public Use
  Company Number: A0676683A

PATIENT

DRUGS (1)
  1. ZYBAN [Suspect]
     Indication: SMOKING CESSATION THERAPY
     Route: 065

REACTIONS (1)
  - NONSPECIFIC REACTION [None]
